FAERS Safety Report 24558315 (Version 2)
Quarter: 2025Q3

REPORT INFORMATION
  Report Type: Report from Study
  Country: US (occurrence: US)
  Receive Date: 20241029
  Receipt Date: 20250802
  Transmission Date: 20251020
  Serious: Yes (Other)
  Sender: ALEXION PHARMACEUTICALS
  Company Number: US-ASTRAZENECA-202410USA023315US

PATIENT
  Sex: Male
  Weight: 47.166 kg

DRUGS (1)
  1. ULTOMIRIS [Suspect]
     Active Substance: RAVULIZUMAB-CWVZ
     Indication: Haemolytic uraemic syndrome

REACTIONS (2)
  - Pneumonia [Unknown]
  - Off label use [Unknown]
